FAERS Safety Report 6019114-8 (Version None)
Quarter: 2008Q4

REPORT INFORMATION
  Report Type: 
  Country: None (occurrence: None)
  Receive Date: 20081224
  Receipt Date: 20081212
  Transmission Date: 20090506
  Serious: Yes (Hospitalization)
  Sender: FDA-Public Use
  Company Number: FR-JNJFOC-20081205818

PATIENT
  Sex: Female

DRUGS (5)
  1. IXPRIM [Suspect]
     Indication: DRUG USE FOR UNKNOWN INDICATION
     Route: 048
  2. ACETAMINOPHEN AND CODEINE PHOSPHATE [Suspect]
     Indication: ARTHRALGIA
     Route: 065
  3. EQUANIL [Concomitant]
     Route: 065
  4. NORSET [Concomitant]
     Route: 065
  5. KALETRA [Concomitant]
     Route: 065

REACTIONS (1)
  - PANCREATITIS [None]
